FAERS Safety Report 5824715-3 (Version None)
Quarter: 2008Q3

REPORT INFORMATION
  Report Type: 
  Country: None (occurrence: None)
  Receive Date: 20080722
  Receipt Date: 20080715
  Transmission Date: 20090109
  Serious: Yes (Death)
  Sender: FDA-Public Use
  Company Number: 163-21880-08061325

PATIENT
  Age: 77 Year
  Sex: Male

DRUGS (5)
  1. REVLIMID [Suspect]
     Indication: MULTIPLE MYELOMA
     Dosage: 25 MG, X21 DAYS, ORAL
     Route: 048
     Dates: start: 20070604, end: 20080415
  2. ASPIRIN [Concomitant]
  3. MULTIVITE (KAPSOVIT) [Concomitant]
  4. RESTORIL [Concomitant]
  5. FE (TEGAFUR) [Concomitant]

REACTIONS (6)
  - DISEASE PROGRESSION [None]
  - ERYTHEMA [None]
  - GENERAL PHYSICAL HEALTH DETERIORATION [None]
  - MULTIPLE MYELOMA [None]
  - OEDEMA PERIPHERAL [None]
  - RASH PRURITIC [None]
